FAERS Safety Report 18050452 (Version 3)
Quarter: 2020Q3

REPORT INFORMATION
  Report Type: Report from Study
  Country: AU (occurrence: AU)
  Receive Date: 20200721
  Receipt Date: 20200828
  Transmission Date: 20201103
  Serious: Yes (Death, Life-Threatening, Hospitalization)
  Sender: FDA-Public Use
  Company Number: AU-EISAI MEDICAL RESEARCH-EC-2020-077697

PATIENT
  Age: 72 Year
  Sex: Female
  Weight: 59.9 kg

DRUGS (19)
  1. CHOLECALCIFEROL [Concomitant]
     Active Substance: CHOLECALCIFEROL
     Dates: start: 201401
  2. PEMETREXED. [Suspect]
     Active Substance: PEMETREXED
     Route: 042
     Dates: start: 20200623, end: 20200623
  3. BETADINE [Concomitant]
     Active Substance: POVIDONE-IODINE
     Dates: start: 20191229
  4. LENVATINIB [Suspect]
     Active Substance: LENVATINIB
     Indication: NON-SMALL CELL LUNG CANCER METASTATIC
     Route: 048
     Dates: start: 20190716, end: 20200626
  5. CODRAL ANTIBACTERIAL SORE THROAT LOZENGES [Concomitant]
     Dates: start: 20200106
  6. CARBOPLATIN. [Suspect]
     Active Substance: CARBOPLATIN
     Dosage: AREA UNDER COVER (AUC) 5 MG/ML/MIN; FREQUENCY UNKNOWN.
     Route: 042
     Dates: start: 20190917, end: 20190917
  7. MOVICOL [Concomitant]
     Active Substance: POLYETHYLENE GLYCOL 3350\POTASSIUM CHLORIDE\SODIUM BICARBONATE\SODIUM CHLORIDE
     Dates: start: 20190722
  8. PRAMIN [Concomitant]
     Dates: start: 20200615
  9. PEMBROLIZUMAB. [Suspect]
     Active Substance: PEMBROLIZUMAB
     Route: 042
     Dates: start: 20200623, end: 20200623
  10. FOLIC ACID. [Concomitant]
     Active Substance: FOLIC ACID
     Dates: start: 20190711
  11. LEVOTHYROXINE SODIUM. [Concomitant]
     Active Substance: LEVOTHYROXINE SODIUM
     Dates: start: 20200121
  12. SYSTANE (HYPROMELLOSE 2910 (4000 MPA.S)) [Concomitant]
     Active Substance: HYPROMELLOSE 2910 (4000 MPA.S)
     Dates: start: 20200122
  13. PEMETREXED. [Suspect]
     Active Substance: PEMETREXED
     Indication: NON-SMALL CELL LUNG CANCER METASTATIC
     Route: 042
     Dates: start: 20190716, end: 20200526
  14. BENADRYL CHESTY FORTE [Concomitant]
     Active Substance: BROMHEXINE HYDROCHLORIDE\GUAIFENESIN
     Dates: start: 20200106
  15. PEMBROLIZUMAB. [Suspect]
     Active Substance: PEMBROLIZUMAB
     Indication: NON-SMALL CELL LUNG CANCER METASTATIC
     Route: 042
     Dates: start: 20190716, end: 20200526
  16. CARBOPLATIN. [Suspect]
     Active Substance: CARBOPLATIN
     Indication: NON-SMALL CELL LUNG CANCER METASTATIC
     Dosage: AREA UNDER COVER (AUC) 5 MG/ML/MIN; FREQUENCY UNKNOWN.
     Route: 042
     Dates: start: 20190716, end: 20190827
  17. BLISTEX LIP [Concomitant]
     Active Substance: CAMPHOR OIL\DIMETHICONE\MENTHOL\PHENOL
     Dates: start: 20190911
  18. COVERSYL [Concomitant]
     Active Substance: PERINDOPRIL
     Dates: start: 20191030
  19. COLGATE SAVACOL [Concomitant]
     Dates: start: 20200430

REACTIONS (1)
  - Pneumonitis [Fatal]

NARRATIVE: CASE EVENT DATE: 20200714
